FAERS Safety Report 13725798 (Version 1)
Quarter: 2017Q3

REPORT INFORMATION
  Report Type: Spontaneous
  Country: US (occurrence: US)
  Receive Date: 20170706
  Receipt Date: 20170706
  Transmission Date: 20171127
  Serious: Yes (Other)
  Sender: FDA-Public Use
  Company Number: None

PATIENT
  Age: 36 Year
  Sex: Female
  Weight: 72 kg

DRUGS (7)
  1. SOMA [Concomitant]
     Active Substance: CARISOPRODOL
  2. FLUCONAZOLE 150MG [Suspect]
     Active Substance: FLUCONAZOLE
     Indication: URINARY TRACT INFECTION
     Dosage: ?          OTHER STRENGTH:MG;QUANTITY:1 TABLET(S);OTHER FREQUENCY:1 A WEEK;?
     Route: 048
     Dates: start: 20170705, end: 20170705
  3. ATARAX [Concomitant]
     Active Substance: HYDROXYZINE HYDROCHLORIDE
  4. AMBIEN [Concomitant]
     Active Substance: ZOLPIDEM TARTRATE
  5. CYMBALTA [Concomitant]
     Active Substance: DULOXETINE HYDROCHLORIDE
  6. LAMICTAL [Concomitant]
     Active Substance: LAMOTRIGINE
  7. TOPAMAX [Concomitant]
     Active Substance: TOPIRAMATE

REACTIONS (13)
  - Abdominal pain [None]
  - Throat irritation [None]
  - Urticaria [None]
  - Rash [None]
  - Pruritus [None]
  - Dysphagia [None]
  - Diarrhoea [None]
  - Thirst [None]
  - Fixed eruption [None]
  - Dyspnoea [None]
  - Erythema [None]
  - Hyperhidrosis [None]
  - Dry mouth [None]

NARRATIVE: CASE EVENT DATE: 20170705
